FAERS Safety Report 23621809 (Version 1)
Quarter: 2024Q1

REPORT INFORMATION
  Report Type: Spontaneous
  Country: US (occurrence: None)
  Receive Date: 20240311
  Receipt Date: 20240311
  Transmission Date: 20240410
  Serious: Yes (unspecified)
  Sender: FDA-Public Use
  Company Number: None

PATIENT
  Age: 65 Year
  Sex: Male
  Weight: 68.4 kg

DRUGS (1)
  1. FRUZAQLA [Suspect]
     Active Substance: FRUQUINTINIB
     Indication: Colorectal cancer metastatic
     Dosage: OTHER FREQUENCY : DAILY ON DAYS 1-21;?
     Route: 048
     Dates: start: 20240226, end: 20240307

REACTIONS (9)
  - Rectal haemorrhage [None]
  - Faeces discoloured [None]
  - Melaena [None]
  - Fatigue [None]
  - Dyspnoea [None]
  - Nausea [None]
  - Haemoglobin decreased [None]
  - Haematocrit decreased [None]
  - Therapy interrupted [None]

NARRATIVE: CASE EVENT DATE: 20240305
